FAERS Safety Report 10620584 (Version 2)
Quarter: 2014Q4

REPORT INFORMATION
  Report Type: Report from Study
  Country: US (occurrence: US)
  Receive Date: 20141202
  Receipt Date: 20141212
  Transmission Date: 20150529
  Serious: Yes (Death)
  Sender: FDA-Public Use
  Company Number: GXBR2014US002505

PATIENT
  Age: 56 Year
  Sex: Male

DRUGS (1)
  1. ENOXAPARIN SODIUM. [Suspect]
     Active Substance: ENOXAPARIN SODIUM
     Indication: DEEP VEIN THROMBOSIS
     Dosage: 100 MG, BID
     Route: 058
     Dates: start: 201407

REACTIONS (1)
  - Death [Fatal]

NARRATIVE: CASE EVENT DATE: 20141013
